FAERS Safety Report 13538433 (Version 1)
Quarter: 2017Q2

REPORT INFORMATION
  Report Type: Spontaneous
  Country: US (occurrence: US)
  Receive Date: 20170512
  Receipt Date: 20170512
  Transmission Date: 20170830
  Serious: No
  Sender: FDA-Public Use
  Company Number: US-BIOVITRUM-2016US0793

PATIENT
  Age: 3 Year
  Sex: Male

DRUGS (1)
  1. ORFADIN [Suspect]
     Active Substance: NITISINONE

REACTIONS (1)
  - Alpha 1 foetoprotein increased [Recovered/Resolved]
